FAERS Safety Report 6580469-7 (Version None)
Quarter: 2010Q1

REPORT INFORMATION
  Report Type: 
  Country: None (occurrence: None)
  Receive Date: 20100203
  Receipt Date: 20100119
  Transmission Date: 20100710
  Serious: Yes (Other)
  Sender: FDA-Public Use
  Company Number: 2010S1000459

PATIENT
  Age: 67 Year
  Sex: Female

DRUGS (9)
  1. PHOSPHOSODA FLAVOR NOT SPECIFIED [Suspect]
     Indication: COLONOSCOPY
     Dosage: 90 ML;TOTAL;PO
     Route: 048
     Dates: start: 20061005, end: 20061006
  2. NEXIUM [Concomitant]
  3. CELEBREX [Concomitant]
  4. NEURONTIN [Concomitant]
  5. FOSAMAX [Concomitant]
  6. KLONOPIN [Concomitant]
  7. DARVOCET [Concomitant]
  8. LIDODERM [Concomitant]
  9. VITAMINS [Concomitant]

REACTIONS (1)
  - RENAL IMPAIRMENT [None]
